FAERS Safety Report 18930355 (Version 2)
Quarter: 2021Q3

REPORT INFORMATION
  Report Type: Report from Study
  Country: KR (occurrence: KR)
  Receive Date: 20210223
  Receipt Date: 20210712
  Transmission Date: 20211014
  Serious: Yes (Other)
  Sender: FDA-Public Use
  Company Number: KR-TEVA-2021-KR-1882785

PATIENT
  Sex: Male

DRUGS (1)
  1. DUTASTERIDE. [Suspect]
     Active Substance: DUTASTERIDE
     Indication: BENIGN PROSTATIC HYPERPLASIA
     Dosage: CUMULATIVE DOSE OF 547.5MG
     Route: 065

REACTIONS (1)
  - Foveal degeneration [Unknown]
